FAERS Safety Report 10984339 (Version 2)
Quarter: 2015Q2

REPORT INFORMATION
  Report Type: Spontaneous
  Country: FR (occurrence: FR)
  Receive Date: 20150403
  Receipt Date: 20150428
  Transmission Date: 20150821
  Serious: Yes (Hospitalization, Other)
  Sender: FDA-Public Use
  Company Number: FR-TEVA-551512ISR

PATIENT
  Sex: Female

DRUGS (1)
  1. COPAXONE [Suspect]
     Active Substance: GLATIRAMER ACETATE
     Dosage: WITH AUTOJECT THEN MANUAL INJECTION
     Route: 058
     Dates: end: 201209

REACTIONS (11)
  - Multiple sclerosis relapse [Recovering/Resolving]
  - Underdose [Not Recovered/Not Resolved]
  - Optic neuritis [Recovering/Resolving]
  - Paraesthesia [Recovering/Resolving]
  - Pain in extremity [Recovering/Resolving]
  - Cyst [Not Recovered/Not Resolved]
  - Trigeminal nerve paresis [Recovering/Resolving]
  - Lhermitte^s sign [Recovering/Resolving]
  - Endometriosis [Unknown]
  - Injection site pain [Unknown]
  - Injection site induration [Recovered/Resolved]

NARRATIVE: CASE EVENT DATE: 2012
